FAERS Safety Report 16822600 (Version 1)
Quarter: 2019Q3

REPORT INFORMATION
  Report Type: Spontaneous
  Country: US (occurrence: US)
  Receive Date: 20190918
  Receipt Date: 20190918
  Transmission Date: 20191005
  Serious: No
  Sender: FDA-Public Use
  Company Number: US-PFIZER INC-2019401913

PATIENT
  Age: 76 Year
  Sex: Female
  Weight: 55.33 kg

DRUGS (7)
  1. ORENITRAM [Concomitant]
     Active Substance: TREPROSTINIL
     Dosage: 4.25 MG, 3X/DAY
     Route: 048
     Dates: start: 20190529
  2. ORENITRAM [Concomitant]
     Active Substance: TREPROSTINIL
     Dosage: 4.25 MG, 3X/DAY
     Route: 048
     Dates: start: 20190529
  3. ORENITRAM [Concomitant]
     Active Substance: TREPROSTINIL
     Dosage: 4.25 MG, 3X/DAY
     Route: 048
     Dates: start: 20190529
  4. ADEMPAS [Concomitant]
     Active Substance: RIOCIGUAT
     Dosage: UNK
  5. LYRICA [Suspect]
     Active Substance: PREGABALIN
     Indication: BACK PAIN
     Dosage: UNK
  6. OPSUMIT [Concomitant]
     Active Substance: MACITENTAN
     Dosage: UNK
  7. ORENITRAM [Concomitant]
     Active Substance: TREPROSTINIL
     Indication: PULMONARY ARTERIAL HYPERTENSION
     Dosage: 4.25 MG, 3X/DAY
     Route: 048
     Dates: start: 20190529

REACTIONS (2)
  - Dizziness [Unknown]
  - Hypotension [Unknown]
